FAERS Safety Report 9326278 (Version 2)
Quarter: 2013Q2

REPORT INFORMATION
  Report Type: Report from Study
  Country: DE (occurrence: DE)
  Receive Date: 20130604
  Receipt Date: 20130620
  Transmission Date: 20140414
  Serious: Yes (Hospitalization)
  Sender: FDA-Public Use
  Company Number: PHHO2013DE007306

PATIENT
  Age: 39 Year
  Sex: Male

DRUGS (4)
  1. LBH589 [Suspect]
     Dosage: 30 MG, UNK
     Route: 048
     Dates: start: 20130430, end: 20130528
  2. LBH589 [Suspect]
     Dosage: 30 MG, UNK
     Route: 048
     Dates: start: 20130611
  3. CICLOSPORIN [Suspect]
     Dosage: 175 MG (100 MG IN MORNING AND 75 MG IN EVENING), UNK
     Dates: end: 20130529
  4. CICLOSPORIN [Suspect]
     Dosage: 25 MG, BID
     Dates: end: 20130530

REACTIONS (1)
  - Migraine with aura [Recovered/Resolved]
